FAERS Safety Report 11030201 (Version 1)
Quarter: 2015Q2

REPORT INFORMATION
  Report Type: Not Available
  Country: US (occurrence: US)
  Receive Date: 20150415
  Receipt Date: 20150415
  Transmission Date: 20150821
  Serious: No
  Sender: FDA-Public Use
  Company Number: US-LUPIN PHARMACEUTICALS INC.-E2B_00003385

PATIENT
  Age: 39 Year
  Sex: Female
  Weight: 67.19 kg

DRUGS (2)
  1. LEVONORGESTREL AND ETHINYL ESTRADIOL TABLETS USP (0.1 MG/0.02 MG) AND [Suspect]
     Active Substance: ETHINYL ESTRADIOL\LEVONORGESTREL
     Indication: CONTRACEPTION
     Dates: start: 20150308, end: 20150311
  2. LEVONORGESTREL AND ETHINYL ESTRADIOL TABLETS USP (0.1 MG/0.02 MG) AND [Suspect]
     Active Substance: ETHINYL ESTRADIOL\LEVONORGESTREL
     Indication: MENSTRUAL CYCLE MANAGEMENT

REACTIONS (5)
  - Acne cystic [Recovering/Resolving]
  - Dizziness [Recovered/Resolved]
  - Nausea [Recovered/Resolved]
  - Polyuria [Recovered/Resolved]
  - Malaise [Recovered/Resolved]

NARRATIVE: CASE EVENT DATE: 20150309
